FAERS Safety Report 12187408 (Version 1)
Quarter: 2016Q1

REPORT INFORMATION
  Report Type: Spontaneous
  Country: GB (occurrence: GB)
  Receive Date: 20160317
  Receipt Date: 20160317
  Transmission Date: 20160526
  Serious: Yes (Congenital Anomaly)
  Sender: FDA-Public Use
  Company Number: GB-TEVA-643435ACC

PATIENT
  Age: 30 Year
  Sex: Female
  Weight: 63.5 kg

DRUGS (1)
  1. ATENOLOL. [Suspect]
     Active Substance: ATENOLOL

REACTIONS (1)
  - Abortion spontaneous [Recovered/Resolved with Sequelae]

NARRATIVE: CASE EVENT DATE: 2004
